FAERS Safety Report 25245876 (Version 1)
Quarter: 2025Q2

REPORT INFORMATION
  Report Type: Spontaneous
  Country: US (occurrence: None)
  Receive Date: 20250428
  Receipt Date: 20250428
  Transmission Date: 20250717
  Serious: No
  Sender: FDA-CTU
  Company Number: None

PATIENT
  Age: 39 Year
  Sex: Female

DRUGS (1)
  1. RINVOQ [Suspect]
     Active Substance: UPADACITINIB
     Indication: Colitis ulcerative
     Dosage: 30MG DAILY ORAL
     Route: 048
     Dates: start: 20241104

REACTIONS (4)
  - Seborrhoea [None]
  - Acne [None]
  - Weight increased [None]
  - Blood cholesterol increased [None]

NARRATIVE: CASE EVENT DATE: 20250103
